FAERS Safety Report 5205732-3 (Version None)
Quarter: 2007Q1

REPORT INFORMATION
  Report Type: 
  Country: None (occurrence: None)
  Receive Date: 20070105
  Receipt Date: 20070105
  Transmission Date: 20070707
  Serious: Yes (Hospitalization)
  Sender: FDA-Public Use
  Company Number: None

PATIENT
  Sex: Male
  Weight: 94.8018 kg

DRUGS (13)
  1. METOPROLOL TARTRATE [Suspect]
     Dosage: 25 MG BID PO
     Route: 048
     Dates: start: 20050601, end: 20060901
  2. HYDROCHLOROTHIAZIDE [Concomitant]
  3. LORATADINE [Concomitant]
  4. METOPROLOL [Concomitant]
  5. ISOSORBIDE MONONITRATE [Concomitant]
  6. ATORVASTATIN CALCIUM [Concomitant]
  7. LISINOPRIL [Concomitant]
  8. RANITIDINE [Concomitant]
  9. INDOMETHACIN [Concomitant]
  10. RISPERIDONE [Concomitant]
  11. SERTRALINE [Concomitant]
  12. CLOPIDOGREL [Concomitant]
  13. VENLAFAXINE HCL [Concomitant]

REACTIONS (4)
  - BRADYCARDIA [None]
  - HYPOTHYROIDISM [None]
  - ORTHOSTATIC HYPOTENSION [None]
  - PRESYNCOPE [None]
